FAERS Safety Report 4512100-6 (Version None)
Quarter: 2004Q4

REPORT INFORMATION
  Report Type: 
  Country: None (occurrence: None)
  Receive Date: 20041123
  Receipt Date: 20041102
  Transmission Date: 20050328
  Serious: Yes (Death, Hospitalization)
  Sender: FDA-Public Use
  Company Number: F01200403442

PATIENT
  Age: 80 Year
  Sex: Male
  Weight: 71.8 kg

DRUGS (2)
  1. OXALIPLATIN- SOLUTION- 130 MG/M2 [Suspect]
     Indication: NON-SMALL CELL LUNG CANCER
     Dosage: 130 MG/M2 Q3W - INTRAVENOUS NOS
     Route: 042
     Dates: start: 20040922, end: 20040922
  2. GEMCITABINE- SOLUTION- 750 MG/M2 [Suspect]
     Dosage: 750 MG/M2 Q3W - INTRVENOUS NOS
     Route: 042
     Dates: start: 20040929, end: 20040929

REACTIONS (5)
  - BRONCHIAL CARCINOMA [None]
  - DISEASE PROGRESSION [None]
  - HYPOXIA [None]
  - NEUTROPENIA [None]
  - PNEUMONIA [None]
